FAERS Safety Report 5968814-4 (Version None)
Quarter: 2008Q4

REPORT INFORMATION
  Report Type: 
  Country: None (occurrence: None)
  Receive Date: 20081126
  Receipt Date: 20081117
  Transmission Date: 20090506
  Serious: Yes (Hospitalization)
  Sender: FDA-Public Use
  Company Number: FR-JNJFOC-20081104375

PATIENT
  Age: 63 Year
  Sex: Female

DRUGS (4)
  1. REMICADE [Suspect]
     Indication: RHEUMATOID ARTHRITIS
     Route: 042
  2. NOVATREX [Suspect]
     Indication: DRUG USE FOR UNKNOWN INDICATION
  3. HEPSERA [Concomitant]
  4. CORTANCYL [Concomitant]

REACTIONS (1)
  - DISSEMINATED TUBERCULOSIS [None]
